FAERS Safety Report 24095759 (Version 3)
Quarter: 2025Q2

REPORT INFORMATION
  Report Type: Spontaneous
  Country: CH (occurrence: CH)
  Receive Date: 20240716
  Receipt Date: 20250516
  Transmission Date: 20250717
  Serious: Yes (Other)
  Sender: MACLEODS
  Company Number: CH-MLMSERVICE-20240627-PI114828-00330-4

PATIENT

DRUGS (4)
  1. VENLAFAXINE [Suspect]
     Active Substance: VENLAFAXINE HYDROCHLORIDE
     Indication: Migraine
     Dosage: FOR }2 YEARS
     Route: 065
     Dates: end: 202107
  2. Estrogen gel [Concomitant]
     Indication: Product used for unknown indication
     Route: 065
  3. PROGESTERONE [Concomitant]
     Active Substance: PROGESTERONE
     Indication: Product used for unknown indication
     Route: 065
  4. FREMANEZUMAB [Concomitant]
     Active Substance: FREMANEZUMAB
     Indication: Product used for unknown indication
     Route: 065

REACTIONS (4)
  - Hypertrophic cardiomyopathy [Recovered/Resolved]
  - Ventricular hypertrophy [Recovering/Resolving]
  - Cardiotoxicity [Recovering/Resolving]
  - Hypertension [Recovering/Resolving]
